FAERS Safety Report 17809606 (Version 1)
Quarter: 2020Q2

REPORT INFORMATION
  Report Type: Spontaneous
  Country: CN (occurrence: CN)
  Receive Date: 20200521
  Receipt Date: 20200521
  Transmission Date: 20200714
  Serious: Yes (Other)
  Sender: FDA-Public Use
  Company Number: CN-ROCHE-2603561

PATIENT
  Age: 69 Year
  Sex: Female

DRUGS (11)
  1. OXALIPLATIN. [Concomitant]
     Active Substance: OXALIPLATIN
     Indication: METASTASES TO LUNG
     Route: 065
     Dates: start: 20190524, end: 20191009
  2. RALTITREXED [Concomitant]
     Active Substance: RALTITREXED
     Indication: METASTASES TO LUNG
     Route: 065
     Dates: start: 20190524, end: 20191009
  3. RALTITREXED [Concomitant]
     Active Substance: RALTITREXED
     Route: 065
     Dates: start: 20200320
  4. RALTITREXED [Concomitant]
     Active Substance: RALTITREXED
     Route: 065
     Dates: start: 20200430
  5. AVASTIN [Suspect]
     Active Substance: BEVACIZUMAB
     Route: 042
     Dates: start: 20200320
  6. RALTITREXED [Concomitant]
     Active Substance: RALTITREXED
     Indication: RECTAL CANCER
     Route: 065
     Dates: start: 20190510
  7. OXALIPLATIN. [Concomitant]
     Active Substance: OXALIPLATIN
     Indication: RECTAL CANCER
     Route: 065
     Dates: start: 20190510
  8. RALTITREXED [Concomitant]
     Active Substance: RALTITREXED
     Route: 065
     Dates: start: 20191024, end: 20191122
  9. AVASTIN [Suspect]
     Active Substance: BEVACIZUMAB
     Indication: RECTAL CANCER
     Route: 042
     Dates: start: 20190524, end: 20191009
  10. AVASTIN [Suspect]
     Active Substance: BEVACIZUMAB
     Indication: METASTASES TO LUNG
     Route: 042
     Dates: start: 20191024, end: 20191122
  11. AVASTIN [Suspect]
     Active Substance: BEVACIZUMAB
     Route: 042
     Dates: start: 20200430

REACTIONS (6)
  - Neurotoxicity [Unknown]
  - Hepatic failure [Unknown]
  - Renal cyst [Unknown]
  - Granulocyte count decreased [Unknown]
  - Pneumonia [Recovering/Resolving]
  - Asphyxia [Unknown]

NARRATIVE: CASE EVENT DATE: 20191219
